FAERS Safety Report 14211220 (Version 2)
Quarter: 2017Q4

REPORT INFORMATION
  Report Type: Spontaneous
  Country: AT (occurrence: AT)
  Receive Date: 20171121
  Receipt Date: 20171124
  Transmission Date: 20180321
  Serious: Yes (Hospitalization)
  Sender: FDA-Public Use
  Company Number: AT-HORIZON-VIM-0152-2017

PATIENT
  Age: 42 Year
  Sex: Female

DRUGS (1)
  1. VIMOVO [Suspect]
     Active Substance: ESOMEPRAZOLE MAGNESIUM\NAPROXEN
     Indication: RHEUMATIC DISORDER
     Dosage: 500 MG/20 MG, UNKNOWN
     Route: 048
     Dates: start: 20170918, end: 20170918

REACTIONS (6)
  - Hyperventilation [Recovered/Resolved]
  - Tachycardia [Recovered/Resolved]
  - Urticaria [Recovered/Resolved]
  - Panic attack [Recovered/Resolved]
  - Eyelid oedema [Recovered/Resolved]
  - Ear swelling [Recovered/Resolved]

NARRATIVE: CASE EVENT DATE: 20170918
